FAERS Safety Report 23305031 (Version 1)
Quarter: 2023Q4

REPORT INFORMATION
  Report Type: Spontaneous
  Country: US (occurrence: US)
  Receive Date: 20231218
  Receipt Date: 20231218
  Transmission Date: 20240109
  Serious: Yes (Other)
  Sender: FDA-Public Use
  Company Number: US-JNJFOC-20231218210

PATIENT
  Age: 9 Decade
  Sex: Female

DRUGS (2)
  1. STELARA [Suspect]
     Active Substance: USTEKINUMAB
     Indication: Colitis
     Dosage: 1 TIME EVERY 6 OR 8 WEEKS
     Route: 058
     Dates: start: 202303
  2. STELARA [Suspect]
     Active Substance: USTEKINUMAB
     Route: 058

REACTIONS (3)
  - Diarrhoea haemorrhagic [Unknown]
  - Product dose omission issue [Unknown]
  - Off label use [Unknown]
